FAERS Safety Report 4901615-4 (Version None)
Quarter: 2006Q1

REPORT INFORMATION
  Report Type: 
  Country: None (occurrence: None)
  Receive Date: 20060206
  Receipt Date: 20050629
  Transmission Date: 20060701
  Serious: Yes (Other)
  Sender: FDA-Public Use
  Company Number: US-BRISTOL-MYERS SQUIBB COMPANY-13020094

PATIENT
  Age: 68 Year
  Sex: Male
  Weight: 91 kg

DRUGS (5)
  1. TAXOL [Suspect]
     Indication: OESOPHAGEAL CANCER METASTATIC
     Route: 042
  2. CARBOPLATIN [Concomitant]
  3. OXYCODONE [Concomitant]
  4. NEULASTA [Concomitant]
  5. PROCRIT [Concomitant]
     Dates: start: 20050614

REACTIONS (1)
  - NEUROPATHY PERIPHERAL [None]
